FAERS Safety Report 6704734-5 (Version None)
Quarter: 2010Q2

REPORT INFORMATION
  Report Type: 
  Country: None (occurrence: None)
  Receive Date: 20100430
  Receipt Date: 20100421
  Transmission Date: 20101027
  Serious: Yes (Life-Threatening, Other)
  Sender: FDA-Public Use
  Company Number: JP-ABBOTT-10P-087-0631309-00

PATIENT
  Sex: Female
  Weight: 43 kg

DRUGS (6)
  1. SEVOFLURANE [Suspect]
     Indication: ANAESTHESIA
     Dosage: 1% X 6 L
     Route: 055
     Dates: start: 20081104, end: 20081104
  2. ROCURONIUM BROMIDE [Suspect]
     Indication: ENDOTRACHEAL INTUBATION
     Route: 042
     Dates: start: 20081104, end: 20081104
  3. REMIFENTANIL [Suspect]
     Indication: ANAESTHESIA
     Route: 041
     Dates: start: 20081104, end: 20081104
  4. PROPOFOL [Suspect]
     Indication: INDUCTION OF ANAESTHESIA
     Route: 040
     Dates: start: 20081104, end: 20081104
  5. ETILEFRINE HYDROCHLORIDE [Suspect]
     Indication: BLOOD PRESSURE ABNORMAL
     Route: 042
     Dates: start: 20081104, end: 20081104
  6. DOPAMINE HCL [Concomitant]
     Indication: BLOOD PRESSURE MANAGEMENT
     Dates: start: 20081111, end: 20081111

REACTIONS (2)
  - ELECTROCARDIOGRAM QT PROLONGED [None]
  - TORSADE DE POINTES [None]
